FAERS Safety Report 20053389 (Version 1)
Quarter: 2021Q4

REPORT INFORMATION
  Report Type: Spontaneous
  Country: US (occurrence: None)
  Receive Date: 20211109
  Receipt Date: 20211109
  Transmission Date: 20220303
  Serious: Yes (Death)
  Sender: FDA-Public Use
  Company Number: None

PATIENT
  Sex: Female

DRUGS (14)
  1. VERZENIO [Suspect]
     Active Substance: ABEMACICLIB
     Indication: Breast cancer
     Dosage: FREQUENCY : TWICE A DAY;?
     Route: 048
  2. AMITRIPTYLINE [Concomitant]
     Active Substance: AMITRIPTYLINE
  3. ASPIRIN [Concomitant]
     Active Substance: ASPIRIN
  4. ATENOLOL [Concomitant]
     Active Substance: ATENOLOL
  5. CALCIUM CARBONATE [Concomitant]
     Active Substance: CALCIUM CARBONATE
  6. GABAPENTIN [Concomitant]
     Active Substance: GABAPENTIN
  7. LETROZOLE [Concomitant]
     Active Substance: LETROZOLE
  8. LORAZEPAM [Concomitant]
     Active Substance: LORAZEPAM
  9. METFORMIN [Concomitant]
     Active Substance: METFORMIN HYDROCHLORIDE
  10. ONE A DAY WOMENS VITAMIN [Concomitant]
  11. PRAVASTATIN [Concomitant]
     Active Substance: PRAVASTATIN
  12. SERTRALINE [Concomitant]
     Active Substance: SERTRALINE HYDROCHLORIDE
  13. TRIAMTERENE [Concomitant]
     Active Substance: TRIAMTERENE
  14. TYLENOL [Concomitant]
     Active Substance: ACETAMINOPHEN

REACTIONS (2)
  - Dehydration [None]
  - Full blood count decreased [None]
